FAERS Safety Report 10009018 (Version 1)
Quarter: 2014Q1

REPORT INFORMATION
  Report Type: Spontaneous
  Country: US (occurrence: US)
  Receive Date: 20140313
  Receipt Date: 20140313
  Transmission Date: 20141002
  Serious: No
  Sender: FDA-Public Use
  Company Number: US-INCYTE CORPORATION-2012IN001161

PATIENT
  Age: 86 Year
  Sex: Male

DRUGS (3)
  1. JAKAFI [Suspect]
     Indication: MYELOFIBROSIS
     Dosage: 20 MG, BID
     Route: 048
  2. AZOPT [Concomitant]
     Dosage: 1 GTT, TID (IN EACH EYE)
     Route: 031
  3. LATANOPROST [Concomitant]
     Dosage: 1 GTT, QD (IN EACH EYE; DAILY AT BEDTIME)

REACTIONS (2)
  - Eye infection [Unknown]
  - Rosacea [Unknown]
